FAERS Safety Report 16661922 (Version 1)
Quarter: 2019Q3

REPORT INFORMATION
  Report Type: Spontaneous
  Country: US (occurrence: US)
  Receive Date: 20190802
  Receipt Date: 20190802
  Transmission Date: 20191004
  Serious: Yes (Hospitalization)
  Sender: FDA-Public Use
  Company Number: None

PATIENT
  Age: 58 Year
  Sex: Female

DRUGS (6)
  1. CLINDAMYCIN. [Concomitant]
     Active Substance: CLINDAMYCIN
  2. BACLOFEN. [Concomitant]
     Active Substance: BACLOFEN
  3. VITAMIN D [Concomitant]
     Active Substance: VITAMIN D NOS
  4. GLATIRAMER [Suspect]
     Active Substance: GLATIRAMER
     Indication: MULTIPLE SCLEROSIS
     Dosage: ?          OTHER FREQUENCY:TIW;?
     Route: 058
     Dates: start: 20190418
  5. VITAMIN C [Concomitant]
     Active Substance: ASCORBIC ACID
  6. TRAMADOL. [Concomitant]
     Active Substance: TRAMADOL

REACTIONS (2)
  - Fall [None]
  - Rib fracture [None]

NARRATIVE: CASE EVENT DATE: 20190726
